FAERS Safety Report 18352850 (Version 1)
Quarter: 2020Q4

REPORT INFORMATION
  Report Type: Spontaneous
  Country: US (occurrence: US)
  Receive Date: 20201007
  Receipt Date: 20201007
  Transmission Date: 20210114
  Serious: Yes (Hospitalization)
  Sender: FDA-Public Use
  Company Number: US-TEVA-2020-US-1835681

PATIENT
  Sex: Male
  Weight: 106.6 kg

DRUGS (2)
  1. AUSTEDO [Suspect]
     Active Substance: DEUTETRABENAZINE
     Dosage: 24 MILLIGRAM DAILY;
     Route: 048
  2. AUSTEDO [Suspect]
     Active Substance: DEUTETRABENAZINE
     Indication: TARDIVE DYSKINESIA
     Dosage: INITIAL START
     Route: 048
     Dates: start: 2019

REACTIONS (4)
  - Bruxism [Unknown]
  - Hand deformity [Unknown]
  - Hospitalisation [Unknown]
  - Tongue biting [Unknown]
